FAERS Safety Report 5423029-3 (Version None)
Quarter: 2007Q3

REPORT INFORMATION
  Report Type: 
  Country: None (occurrence: None)
  Receive Date: 20070822
  Receipt Date: 20070810
  Transmission Date: 20080115
  Serious: Yes (Other)
  Sender: FDA-Public Use
  Company Number: US-PFIZER INC-2007067430

PATIENT
  Sex: Male

DRUGS (3)
  1. ZYVOX [Suspect]
     Indication: CELLULITIS
  2. ZYVOX [Suspect]
     Indication: STAPHYLOCOCCAL INFECTION
  3. LEVOFLOXACIN [Interacting]
     Indication: CELLULITIS

REACTIONS (5)
  - DRUG INTERACTION [None]
  - GLOSSODYNIA [None]
  - ORAL PAIN [None]
  - PHOTOPHOBIA [None]
  - VITAMIN B COMPLEX DEFICIENCY [None]
